FAERS Safety Report 6187291-4 (Version None)
Quarter: 2009Q2

REPORT INFORMATION
  Report Type: 
  Country: None (occurrence: None)
  Receive Date: 20090512
  Receipt Date: 20090501
  Transmission Date: 20091009
  Serious: Yes (Death)
  Sender: FDA-Public Use
  Company Number: GB-JNJFOC-20090404961

PATIENT
  Age: 75 Year
  Sex: Male
  Weight: 74 kg

DRUGS (14)
  1. REMICADE [Suspect]
     Indication: RHEUMATOID ARTHRITIS
     Route: 042
  2. METHOTREXATE [Concomitant]
  3. ASPIRIN [Concomitant]
  4. ATENOLOL [Concomitant]
  5. BECLOMETHASONE DIPROPIONATE [Concomitant]
  6. CAPTOPRIL [Concomitant]
  7. FROBEN [Concomitant]
  8. FRUSEMIDE [Concomitant]
  9. GTN SPRAY [Concomitant]
  10. LANSOPRAZOLE [Concomitant]
  11. MST [Concomitant]
  12. PERINDOPRIL [Concomitant]
  13. PRAZSOIN HCL [Concomitant]
  14. TRAMADOL [Concomitant]

REACTIONS (1)
  - ACUTE MYOCARDIAL INFARCTION [None]
